FAERS Safety Report 15637078 (Version 1)
Quarter: 2018Q4

REPORT INFORMATION
  Report Type: Other
  Country: US (occurrence: BE)
  Receive Date: 20181120
  Receipt Date: 20181120
  Transmission Date: 20190205
  Serious: Yes (Other)
  Sender: FDA-Public Use
  Company Number: BE-BRECKENRIDGE PHARMACEUTICAL, INC.-2059052

PATIENT
  Sex: Male

DRUGS (1)
  1. PRAMIPEXOLE. [Suspect]
     Active Substance: PRAMIPEXOLE
     Indication: PARKINSON^S DISEASE
     Route: 048

REACTIONS (2)
  - Impulse-control disorder [Not Recovered/Not Resolved]
  - Paraphilia [Not Recovered/Not Resolved]
